FAERS Safety Report 5846320-5 (Version None)
Quarter: 2008Q3

REPORT INFORMATION
  Report Type: 
  Country: None (occurrence: None)
  Receive Date: 20080815
  Receipt Date: 20080718
  Transmission Date: 20090109
  Serious: No
  Sender: FDA-Public Use
  Company Number: US-BAYER-200829241NA

PATIENT
  Age: 37 Year
  Sex: Male
  Weight: 109 kg

DRUGS (1)
  1. MAGNEVIST [Suspect]
     Indication: NUCLEAR MAGNETIC RESONANCE IMAGING
     Dosage: TOTAL DAILY DOSE: 18 ML  UNIT DOSE: 100 ML
     Route: 042
     Dates: start: 20080703, end: 20080703

REACTIONS (2)
  - NAUSEA [None]
  - VOMITING [None]
